FAERS Safety Report 6921512-2 (Version None)
Quarter: 2010Q3

REPORT INFORMATION
  Report Type: 
  Country: None (occurrence: None)
  Receive Date: 20100812
  Receipt Date: 20100806
  Transmission Date: 20110219
  Serious: Yes (Death, Hospitalization, Other)
  Sender: FDA-Public Use
  Company Number: PHHY2009GB48031

PATIENT
  Sex: Male

DRUGS (12)
  1. CLOZARIL [Suspect]
     Indication: SCHIZOPHRENIA
     Dosage: 750 MG, UNK
     Dates: start: 20060908
  2. CLOZARIL [Suspect]
     Dosage: 700MG DAILY
     Route: 048
  3. HALOPERIDOL [Concomitant]
     Indication: PSYCHOTIC DISORDER
     Dosage: 30MG DAILY
     Dates: start: 20080801
  4. HALOPERIDOL [Concomitant]
     Dosage: 40 MG, QD
     Dates: start: 20090801
  5. VALPROATE SODIUM [Concomitant]
     Indication: AFFECTIVE DISORDER
     Dosage: 1.6 G DAILY
     Route: 048
     Dates: start: 20080401
  6. HYOSCINE [Concomitant]
     Indication: SALIVARY HYPERSECRETION
     Dosage: 1 MG, UNK
     Dates: start: 20090901
  7. HYOSCINE [Concomitant]
     Dosage: 600MG DAILY
  8. LANSOPRAZOLE [Concomitant]
     Indication: GASTRITIS
     Dosage: UNK
     Route: 048
     Dates: start: 20080501
  9. LANSOPRAZOLE [Concomitant]
     Indication: PEPTIC ULCER
     Dosage: 60 MG, UNK
     Dates: start: 20080501
  10. LACTULOSE [Concomitant]
     Indication: CONSTIPATION
     Dosage: 30 ML, UNK
  11. LAMOTRIGINE [Concomitant]
     Dosage: 300MG DAILY
     Dates: end: 20090501
  12. SENNA [Concomitant]
     Indication: CONSTIPATION
     Dosage: 2 TABLETS DAILY

REACTIONS (20)
  - ABDOMINAL PAIN UPPER [None]
  - AGGRESSION [None]
  - AGITATION [None]
  - CARDIAC ARREST [None]
  - CARDIAC DISORDER [None]
  - CIRCULATORY COLLAPSE [None]
  - CONTUSION [None]
  - DYSPNOEA [None]
  - EROSIVE OESOPHAGITIS [None]
  - GRAND MAL CONVULSION [None]
  - HAEMATEMESIS [None]
  - HIATUS HERNIA [None]
  - INTENTIONAL SELF-INJURY [None]
  - MENTAL IMPAIRMENT [None]
  - SINUS TACHYCARDIA [None]
  - SUDDEN DEATH [None]
  - THERMAL BURN [None]
  - UNRESPONSIVE TO STIMULI [None]
  - URINARY INCONTINENCE [None]
  - URINE FLOW DECREASED [None]
